FAERS Safety Report 9368078 (Version 1)
Quarter: 2013Q2

REPORT INFORMATION
  Report Type: Spontaneous
  Country: US (occurrence: US)
  Receive Date: 20130625
  Receipt Date: 20130625
  Transmission Date: 20140414
  Serious: No
  Sender: FDA-Public Use
  Company Number: US-ASTELLAS-2012US012056

PATIENT
  Age: 52 Year
  Sex: Male
  Weight: 136 kg

DRUGS (7)
  1. VESICARE [Suspect]
     Indication: POLLAKIURIA
     Dosage: 5 MG, UID/QD
     Route: 048
     Dates: start: 201210, end: 201210
  2. HUMALOG [Concomitant]
     Indication: DIABETES MELLITUS
     Dosage: 75/25 MG 1 INJECTION/2 DAILY
     Route: 065
  3. OMEPRAZOLE [Concomitant]
     Indication: GASTROOESOPHAGEAL REFLUX DISEASE
     Dosage: 25 MG, UNKNOWN/D
     Route: 048
  4. METFORMIN [Concomitant]
     Indication: DIABETES MELLITUS
     Dosage: 2000 MG, UNKNOWN/D
     Route: 048
  5. BENICAR [Concomitant]
     Indication: HYPERTENSION
     Dosage: 20 MG, UID/QD
     Route: 048
  6. VENLAFAXIN [Concomitant]
     Indication: DIABETIC NEUROPATHY
     Dosage: 150 MG, UNKNOWN/D
     Route: 048
  7. SIMVASTATIN [Concomitant]
     Indication: BLOOD CHOLESTEROL INCREASED
     Dosage: M
     Route: 048

REACTIONS (1)
  - Cough [Recovered/Resolved]
